FAERS Safety Report 9804205 (Version 3)
Quarter: 2014Q2

REPORT INFORMATION
  Report Type: Spontaneous
  Country: GB (occurrence: GB)
  Receive Date: 20140108
  Receipt Date: 20140519
  Transmission Date: 20141212
  Serious: Yes (Hospitalization)
  Sender: FDA-Public Use
  Company Number: GB-ACTAVIS-2013-24064

PATIENT
  Age: 76 Year
  Sex: Female
  Weight: 76 kg

DRUGS (10)
  1. LETROZOLE (UNKNOWN) [Suspect]
     Indication: BREAST CANCER METASTATIC
     Dosage: 2.5 MG, DAILY
     Route: 048
     Dates: start: 20131124
  2. LETROZOLE (UNKNOWN) [Suspect]
     Dosage: 2.5 MG, DAILY
     Route: 048
     Dates: start: 20130109
  3. TRASTUZUMAB [Suspect]
     Indication: BREAST CANCER METASTATIC
     Dosage: 6 MG/KG, MAINTENANCE DOSE (450 MG ,THRICE WEEKLY)
     Route: 042
     Dates: start: 20131112
  4. TRASTUZUMAB [Suspect]
     Dosage: 8 MG/KG, LOADING DOSE, 1 CYCLE
     Route: 042
     Dates: start: 20130109, end: 20130109
  5. SIMVASTATIN [Concomitant]
     Indication: PRODUCT USED FOR UNKNOWN INDICATION
     Dosage: 20 MG, UNKNOWN
     Route: 065
  6. LACTULOSE [Concomitant]
     Indication: PRODUCT USED FOR UNKNOWN INDICATION
     Dosage: 10 ML, PRN
     Route: 065
     Dates: start: 20130808
  7. CITALOPRAM [Concomitant]
     Indication: PRODUCT USED FOR UNKNOWN INDICATION
     Dosage: 20 MG, UNKNOWN
     Route: 065
     Dates: start: 201310
  8. ZOPICLONE [Concomitant]
     Indication: PRODUCT USED FOR UNKNOWN INDICATION
     Dosage: 3.75 MG, UNKNOWN
     Route: 065
  9. OMEPRAZOLE [Concomitant]
     Indication: PRODUCT USED FOR UNKNOWN INDICATION
     Dosage: 20 MG, UNKNOWN,
     Route: 065
  10. BUTRANS                            /00444001/ [Concomitant]
     Indication: PRODUCT USED FOR UNKNOWN INDICATION
     Dosage: 10 DF, UNKNOWN; 10 MICROGRAMS/HR, UNK
     Route: 065
     Dates: start: 20130808

REACTIONS (1)
  - Pain in extremity [Recovered/Resolved]
